FAERS Safety Report 6580963-9 (Version None)
Quarter: 2010Q1

REPORT INFORMATION
  Report Type: 
  Country: None (occurrence: None)
  Receive Date: 20100215
  Receipt Date: 20100112
  Transmission Date: 20100710
  Serious: No
  Sender: FDA-Public Use
  Company Number: US-BAYER-201011135NA

PATIENT
  Sex: Female

DRUGS (1)
  1. NEXAVAR [Suspect]
     Indication: DRUG USE FOR UNKNOWN INDICATION
     Route: 048
     Dates: end: 20091201

REACTIONS (4)
  - ALOPECIA [None]
  - HAIR GROWTH ABNORMAL [None]
  - PAIN OF SKIN [None]
  - SKIN BURNING SENSATION [None]
